FAERS Safety Report 5342200-2 (Version None)
Quarter: 2007Q2

REPORT INFORMATION
  Report Type: 
  Country: None (occurrence: None)
  Receive Date: 20070601
  Receipt Date: 20070523
  Transmission Date: 20071010
  Serious: Yes (Hospitalization)
  Sender: FDA-Public Use
  Company Number: PL-ASTRAZENECA-2007SE02912

PATIENT
  Age: 695 Month
  Sex: Female
  Weight: 80 kg

DRUGS (11)
  1. BETALOC ZOK 50 [Suspect]
     Indication: HYPERTENSION
     Route: 048
     Dates: start: 20050401, end: 20060301
  2. BETALOC ZOK 50 [Suspect]
     Route: 048
     Dates: start: 20061130, end: 20070116
  3. EUTHYROX [Concomitant]
     Indication: HYPOTHYROIDISM
     Route: 048
  4. TEGRETOL [Concomitant]
     Indication: EPILEPSY
     Route: 048
  5. LAMITRIN [Concomitant]
     Indication: EPILEPSY
     Route: 048
     Dates: start: 20060101, end: 20070101
  6. CARDURA [Concomitant]
     Indication: HYPERTENSION
     Route: 048
  7. AMLOPIN [Concomitant]
     Route: 048
  8. HYGROTON [Concomitant]
     Route: 048
  9. LORISTA [Concomitant]
     Indication: HYPERTENSION
     Route: 048
  10. CONTROLOC [Concomitant]
  11. KALIPOZ [Concomitant]

REACTIONS (1)
  - SYSTEMIC LUPUS ERYTHEMATOSUS [None]
